FAERS Safety Report 8159433-2 (Version None)
Quarter: 2012Q1

REPORT INFORMATION
  Report Type: 
  Country: None (occurrence: None)
  Receive Date: 20120223
  Receipt Date: 20120214
  Transmission Date: 20120608
  Serious: Yes (Hospitalization)
  Sender: FDA-Public Use
  Company Number: GB-BAUSCH-2012BL001170

PATIENT
  Age: 28 Year
  Sex: Female
  Weight: 95 kg

DRUGS (10)
  1. ATRACURIUM [Suspect]
     Indication: GENERAL ANAESTHESIA
     Route: 065
  2. FENTANYL [Suspect]
     Indication: GENERAL ANAESTHESIA
     Route: 042
  3. CYCLIZINE [Suspect]
     Indication: GENERAL ANAESTHESIA
     Route: 042
  4. SUPRANE [Suspect]
     Indication: GENERAL ANAESTHESIA
     Route: 065
     Dates: start: 20111011
  5. MEPERIDINE HCL [Suspect]
     Indication: GENERAL ANAESTHESIA
     Route: 042
     Dates: start: 20101010, end: 20101010
  6. DEXAMETHASONE [Suspect]
     Indication: GENERAL ANAESTHESIA
     Route: 042
  7. REMIFENTANIL [Suspect]
     Indication: GENERAL ANAESTHESIA
     Route: 042
  8. SUPRANE [Suspect]
     Indication: CHOLEDOCHOLITHOTOMY
     Route: 065
     Dates: start: 20111011
  9. ONDANSETRON [Suspect]
     Indication: GENERAL ANAESTHESIA
     Route: 042
  10. SCOPOLAMINE [Suspect]
     Indication: PRODUCT USED FOR UNKNOWN INDICATION
     Route: 042
     Dates: start: 20111010, end: 20111010

REACTIONS (2)
  - ABDOMINAL PAIN [None]
  - LIVER FUNCTION TEST ABNORMAL [None]
